FAERS Safety Report 8545659-2 (Version None)
Quarter: 2012Q3

REPORT INFORMATION
  Report Type: 
  Country: None (occurrence: None)
  Receive Date: 20120727
  Receipt Date: 20120717
  Transmission Date: 20120928
  Serious: Yes (Death)
  Sender: FDA-Public Use
  Company Number: US-ABBOTT-12P-163-0949754-00

PATIENT
  Sex: Female

DRUGS (9)
  1. LANTUS [Concomitant]
     Indication: DIABETES MELLITUS
     Dates: start: 20080101
  2. PLAVIX [Concomitant]
     Indication: ANGINA PECTORIS
     Dates: start: 20080101
  3. HUMIRA [Suspect]
  4. GLIPIZIDE [Concomitant]
     Indication: DIABETES MELLITUS
     Dates: start: 20080101
  5. PERSANTINE [Concomitant]
     Indication: ASTHMA
     Dates: start: 20080101
  6. DEMADEX [Concomitant]
     Indication: RENAL DISORDER
     Dates: start: 20080101
  7. AMIODARONE HCL [Concomitant]
     Indication: ANGINA PECTORIS
     Dates: start: 20080101
  8. CELLCEPT [Concomitant]
     Indication: RENAL DISORDER
     Dates: start: 20080101
  9. HUMIRA [Suspect]
     Indication: PSORIASIS
     Dosage: ONCE
     Route: 058
     Dates: start: 20090701, end: 20090701

REACTIONS (1)
  - DEATH [None]
